FAERS Safety Report 12945359 (Version 1)
Quarter: 2016Q4

REPORT INFORMATION
  Report Type: Report from Study
  Country: None (occurrence: CO)
  Receive Date: 20161116
  Receipt Date: 20161116
  Transmission Date: 20170207
  Serious: Yes (Hospitalization)
  Sender: FDA-Public Use
  Company Number: CO-ABBVIE-16K-036-1782655-00

PATIENT
  Age: 69 Year
  Sex: Female
  Weight: 63 kg

DRUGS (1)
  1. HUMIRA [Suspect]
     Active Substance: ADALIMUMAB
     Indication: RHEUMATOID ARTHRITIS
     Route: 058
     Dates: start: 20150718, end: 20161021

REACTIONS (4)
  - Purulence [Recovering/Resolving]
  - Wound infection bacterial [Recovering/Resolving]
  - Wound complication [Recovering/Resolving]
  - Inflammation of wound [Recovering/Resolving]

NARRATIVE: CASE EVENT DATE: 20161028
